FAERS Safety Report 16379772 (Version 1)
Quarter: 2019Q2

REPORT INFORMATION
  Report Type: Spontaneous
  Country: PL (occurrence: PL)
  Receive Date: 20190531
  Receipt Date: 20190531
  Transmission Date: 20190711
  Serious: Yes (Other)
  Sender: FDA-Public Use
  Company Number: PHHY2019PL121309

PATIENT
  Age: 37 Year
  Sex: Female

DRUGS (1)
  1. HEPARIN [Suspect]
     Active Substance: HEPARIN SODIUM
     Indication: DEEP VEIN THROMBOSIS
     Dosage: UNK
     Route: 058

REACTIONS (4)
  - Haemorrhage [Unknown]
  - Breech presentation [Unknown]
  - Maternal exposure during pregnancy [Unknown]
  - Uterine scar [Unknown]
